FAERS Safety Report 10357083 (Version 1)
Quarter: 2014Q3

REPORT INFORMATION
  Report Type: Spontaneous
  Country: JP (occurrence: JP)
  Receive Date: 20140801
  Receipt Date: 20140801
  Transmission Date: 20150326
  Serious: Yes (Other)
  Sender: FDA-Public Use
  Company Number: PHHY2014JP092562

PATIENT
  Age: 61 Year
  Sex: Male

DRUGS (1)
  1. AMIODARONE [Suspect]
     Active Substance: AMIODARONE
     Indication: ATRIAL FIBRILLATION

REACTIONS (6)
  - Hypothyroidism [Recovering/Resolving]
  - Atrial fibrillation [Unknown]
  - Cardiac failure congestive [Unknown]
  - Pulmonary congestion [Unknown]
  - Cardiac failure [Unknown]
  - Hyperthyroidism [Recovered/Resolved]
